FAERS Safety Report 24423182 (Version 1)
Quarter: 2024Q4

REPORT INFORMATION
  Report Type: Spontaneous
  Country: CN (occurrence: CN)
  Receive Date: 20241010
  Receipt Date: 20241010
  Transmission Date: 20250115
  Serious: Yes (Hospitalization, Other)
  Sender: RANBAXY
  Company Number: CN-SUN PHARMACEUTICAL INDUSTRIES LTD-2024R1-465957

PATIENT
  Age: 31 Year
  Sex: Female

DRUGS (4)
  1. RIVAROXABAN [Suspect]
     Active Substance: RIVAROXABAN
     Indication: Anticoagulant therapy
     Dosage: 15 MILLIGRAM, BID
     Route: 048
  2. ASPIRIN [Suspect]
     Active Substance: ASPIRIN
     Indication: Venous thrombosis
     Dosage: 100 MILLIGRAM, OD
     Route: 048
  3. TENOFOVIR [Suspect]
     Active Substance: TENOFOVIR
     Indication: Anticoagulant therapy
     Dosage: 25 MILLIGRAM, OD
     Route: 065
  4. UNSPECIFIED INGREDIENT [Suspect]
     Active Substance: UNSPECIFIED INGREDIENT
     Indication: Venous thrombosis
     Dosage: 6000 INTERNATIONAL UNIT
     Route: 058

REACTIONS (3)
  - Subchorionic haematoma [Unknown]
  - Deep vein thrombosis [Unknown]
  - Exposure during pregnancy [Unknown]
